FAERS Safety Report 11047978 (Version 5)
Quarter: 2016Q4

REPORT INFORMATION
  Report Type: Spontaneous
  Country: US (occurrence: US)
  Receive Date: 20150420
  Receipt Date: 20161115
  Transmission Date: 20170206
  Serious: No
  Sender: FDA-Public Use
  Company Number: US-009507513-1504USA017807

PATIENT
  Sex: Male

DRUGS (2)
  1. PROVENTIL [Concomitant]
     Active Substance: ALBUTEROL
     Indication: ASTHMA
  2. PROPECIA [Suspect]
     Active Substance: FINASTERIDE
     Indication: ALOPECIA
     Dosage: 1 MG, UNK
     Route: 048
     Dates: start: 200710, end: 201201

REACTIONS (7)
  - Erectile dysfunction [Unknown]
  - Hypogonadism [Unknown]
  - Infertility [Unknown]
  - Hypertension [Unknown]
  - Varicocele [Unknown]
  - Sexual dysfunction [Unknown]
  - Acne [Unknown]

NARRATIVE: CASE EVENT DATE: 2007
